FAERS Safety Report 15843342 (Version 3)
Quarter: 2019Q2

REPORT INFORMATION
  Report Type: Spontaneous
  Country: IT (occurrence: IT)
  Receive Date: 20190118
  Receipt Date: 20190530
  Transmission Date: 20190711
  Serious: Yes (Other)
  Sender: FDA-Public Use
  Company Number: IT-AMGEN-ITASP2019004349

PATIENT
  Age: 50 Year
  Sex: Female

DRUGS (10)
  1. XGEVA [Suspect]
     Active Substance: DENOSUMAB
     Indication: BREAST CANCER METASTATIC
     Dosage: 120 MG, CYCLICAL
     Route: 065
     Dates: start: 20170914, end: 20181105
  2. UROFOS [Concomitant]
     Dosage: 1 DF, UNK
     Route: 048
  3. LETROZOLE. [Concomitant]
     Active Substance: LETROZOLE
     Dosage: 2.5 MG, UNK
     Route: 048
  4. KERAFLOX [Concomitant]
     Dosage: 600 MG, UNK
     Route: 048
  5. SELEPARINA [Concomitant]
     Active Substance: NADROPARIN CALCIUM
     Dosage: 1 DF, UNK
     Route: 058
  6. PERTUZUMAB. [Concomitant]
     Active Substance: PERTUZUMAB
     Indication: BREAST CANCER METASTATIC
     Dosage: 420 MG, UNK
     Route: 042
     Dates: start: 20160801, end: 20181217
  7. TRIATEC COMP [Concomitant]
     Active Substance: HYDROCHLOROTHIAZIDE\RAMIPRIL
     Dosage: 5 MG, UNK
     Route: 048
  8. TRASTUZUMAB. [Concomitant]
     Active Substance: TRASTUZUMAB
     Indication: BREAST CANCER METASTATIC
     Dosage: 420 MG, UNK
     Route: 042
     Dates: start: 20160801, end: 20181217
  9. TINSET [Concomitant]
     Active Substance: OXATOMIDE
     Indication: PREMEDICATION
     Dosage: 30 MG, UNK
     Route: 048
  10. DIBASE [Concomitant]
     Active Substance: CHOLECALCIFEROL
     Dosage: 25000 UI/2.5 ML
     Route: 048

REACTIONS (2)
  - Gingivitis [Not Recovered/Not Resolved]
  - Osteonecrosis of jaw [Not Recovered/Not Resolved]

NARRATIVE: CASE EVENT DATE: 20181106
